FAERS Safety Report 9212497 (Version 1)
Quarter: 2013Q2

REPORT INFORMATION
  Report Type: Spontaneous
  Country: US (occurrence: US)
  Receive Date: 20130405
  Receipt Date: 20130405
  Transmission Date: 20140414
  Serious: No
  Sender: FDA-Public Use
  Company Number: US-009507513-1304USA001725

PATIENT
  Age: 32 Year
  Sex: 0
  Weight: 87.53 kg

DRUGS (1)
  1. NEXPLANON [Suspect]
     Indication: CONTRACEPTION
     Dosage: UNK
     Dates: start: 20130328, end: 20130329

REACTIONS (2)
  - Device expulsion [Unknown]
  - Pain in extremity [Unknown]
